FAERS Safety Report 8638741 (Version 5)
Quarter: 2013Q2

REPORT INFORMATION
  Report Type: Spontaneous
  Country: US (occurrence: US)
  Receive Date: 20120627
  Receipt Date: 20130419
  Transmission Date: 20140414
  Serious: Yes (Death, Hospitalization, Other)
  Sender: FDA-Public Use
  Company Number: US-BRISTOL-MYERS SQUIBB COMPANY-16556763

PATIENT
  Age: 77 Year
  Sex: Male
  Weight: 71.65 kg

DRUGS (7)
  1. YERVOY [Suspect]
     Indication: MALIGNANT MELANOMA
     Dosage: 3MG/KG-EVERY 21DAYS
     Route: 042
     Dates: start: 20120203, end: 20120424
  2. DECADRON [Concomitant]
  3. DILAUDID [Concomitant]
  4. OXYCONTIN [Concomitant]
  5. PRILOSEC [Concomitant]
  6. COUMADIN [Concomitant]
  7. METOPROLOL [Concomitant]

REACTIONS (7)
  - Malignant neoplasm progression [Fatal]
  - Rash [Unknown]
  - Diarrhoea [Unknown]
  - Pain [Unknown]
  - Abdominal pain [Unknown]
  - Constipation [Unknown]
  - Dehydration [Unknown]
